FAERS Safety Report 15446315 (Version 1)
Quarter: 2018Q3

REPORT INFORMATION
  Report Type: Spontaneous
  Country: US (occurrence: US)
  Receive Date: 20180928
  Receipt Date: 20180928
  Transmission Date: 20181010
  Serious: No
  Sender: FDA-Public Use
  Company Number: US-AMGEN-USASP2018086595

PATIENT
  Age: 58 Year
  Sex: Female

DRUGS (1)
  1. PROLIA [Suspect]
     Active Substance: DENOSUMAB
     Indication: OSTEOPOROSIS POSTMENOPAUSAL
     Dosage: 60 MG, Q6MO
     Route: 065

REACTIONS (12)
  - Paraesthesia [Unknown]
  - Panic attack [Unknown]
  - Dizziness [Unknown]
  - Vertigo [Unknown]
  - Pruritus [Unknown]
  - Fall [Unknown]
  - Hypoaesthesia [Unknown]
  - Nausea [Unknown]
  - Fatigue [Recovered/Resolved]
  - Back pain [Unknown]
  - Arthralgia [Unknown]
  - Musculoskeletal disorder [Unknown]

NARRATIVE: CASE EVENT DATE: 2018
